FAERS Safety Report 19973357 (Version 1)
Quarter: 2021Q4

REPORT INFORMATION
  Report Type: Spontaneous
  Country: US (occurrence: US)
  Receive Date: 20211018
  Receipt Date: 20211018
  Transmission Date: 20220303
  Serious: No
  Sender: FDA-Public Use
  Company Number: None

PATIENT
  Age: 73 Year
  Sex: Male

DRUGS (1)
  1. COSENTYX [Suspect]
     Active Substance: SECUKINUMAB
     Indication: Psoriasis
     Dosage: ?          OTHER DOSE:300MG (2 PENS);????OTHER FREQUENCY : UD
     Route: 058
     Dates: start: 202003

REACTIONS (1)
  - Muscular weakness [None]
